FAERS Safety Report 16922669 (Version 1)
Quarter: 2019Q4

REPORT INFORMATION
  Report Type: Spontaneous
  Country: SE (occurrence: SE)
  Receive Date: 20191016
  Receipt Date: 20191016
  Transmission Date: 20200122
  Serious: Yes (Other)
  Sender: FDA-Public Use
  Company Number: SE-BAXTER-2019BAX019932

PATIENT
  Age: 35 Year
  Sex: Female

DRUGS (2)
  1. SENDOXAN 2000 MG PULVER TILL INJEKTIONSV?TSKA, L?SNING [Suspect]
     Active Substance: CYCLOPHOSPHAMIDE
     Indication: PRODUCT USED FOR UNKNOWN INDICATION
     Route: 065
     Dates: start: 20150908
  2. SENDOXAN 2000 MG PULVER TILL INJEKTIONSV?TSKA, L?SNING [Suspect]
     Active Substance: CYCLOPHOSPHAMIDE
     Indication: MULTIPLE SCLEROSIS
     Route: 065
     Dates: start: 20150908

REACTIONS (1)
  - Basedow^s disease [Recovering/Resolving]

NARRATIVE: CASE EVENT DATE: 20170501
